FAERS Safety Report 4974189-X (Version None)
Quarter: 2006Q2

REPORT INFORMATION
  Report Type: 
  Country: None (occurrence: None)
  Receive Date: 20060417
  Receipt Date: 20050621
  Transmission Date: 20061013
  Serious: Yes (Hospitalization, Other)
  Sender: FDA-Public Use
  Company Number: US-MERCK-0506USA03211

PATIENT
  Age: 49 Year
  Sex: Female
  Weight: 104 kg

DRUGS (5)
  1. VIOXX [Suspect]
     Indication: ARTHRALGIA
     Route: 048
     Dates: start: 19991001, end: 20030101
  2. VIOXX [Suspect]
     Indication: OSTEOARTHRITIS
     Route: 048
     Dates: start: 19991001, end: 20030101
  3. TYLENOL (CAPLET) [Concomitant]
     Indication: HEADACHE
     Route: 065
  4. AVAPRO [Concomitant]
     Route: 065
  5. MAXZIDE [Concomitant]
     Route: 065

REACTIONS (25)
  - AMNESIA [None]
  - ANAEMIA [None]
  - CEREBELLAR ATROPHY [None]
  - CEREBROVASCULAR ACCIDENT [None]
  - CEREBROVASCULAR DISORDER [None]
  - CHEST PAIN [None]
  - CORONARY ARTERY DISEASE [None]
  - CORONARY ARTERY OCCLUSION [None]
  - DIVERTICULUM [None]
  - GASTROOESOPHAGEAL REFLUX DISEASE [None]
  - GOITRE [None]
  - HAEMORRHOIDS [None]
  - HEADACHE [None]
  - HYPERCHLORHYDRIA [None]
  - HYPERGLYCAEMIA [None]
  - HYPERLIPIDAEMIA [None]
  - HYPERTENSION [None]
  - MIDDLE INSOMNIA [None]
  - MYOCARDIAL INFARCTION [None]
  - OVARIAN CYST [None]
  - PELVIC PAIN [None]
  - PERSONALITY CHANGE [None]
  - STENT OCCLUSION [None]
  - THYROID NEOPLASM [None]
  - UPPER RESPIRATORY TRACT INFECTION [None]
